FAERS Safety Report 8211734-5 (Version None)
Quarter: 2012Q1

REPORT INFORMATION
  Report Type: 
  Country: None (occurrence: None)
  Receive Date: 20120315
  Receipt Date: 20120309
  Transmission Date: 20120608
  Serious: Yes (Other)
  Sender: FDA-Public Use
  Company Number: DE-JNJFOC-20120304682

PATIENT
  Sex: Female
  Weight: 75 kg

DRUGS (11)
  1. DICLOFENAC SODIUM [Concomitant]
  2. PANTOPRAZOLE [Concomitant]
  3. MIRTAZAPINE [Concomitant]
  4. SIMVASTATIN [Concomitant]
  5. DISALUNIL [Concomitant]
  6. CORINFAR [Concomitant]
  7. XARELTO [Suspect]
     Indication: THROMBOSIS PROPHYLAXIS
     Route: 048
     Dates: start: 20120216, end: 20120226
  8. XARELTO [Suspect]
     Indication: KNEE ARTHROPLASTY
     Route: 048
     Dates: start: 20120216, end: 20120226
  9. LISINOPRIL [Concomitant]
  10. TOPIRAMATE [Concomitant]
  11. ACETYLSALICYLIC ACID SRT [Concomitant]

REACTIONS (3)
  - HEMIPARESIS [None]
  - PARTIAL SEIZURES [None]
  - APHASIA [None]
